FAERS Safety Report 9403334 (Version 1)
Quarter: 2013Q3

REPORT INFORMATION
  Report Type: Spontaneous
  Country: IN (occurrence: IN)
  Receive Date: 20130716
  Receipt Date: 20130716
  Transmission Date: 20140515
  Serious: Yes (Other)
  Sender: FDA-Public Use
  Company Number: IN-MYLANLABS-2013S1015009

PATIENT
  Age: 55 Year
  Sex: Male

DRUGS (2)
  1. FLUOROURACIL [Suspect]
     Indication: COLON CANCER
     Route: 065
  2. OXALIPLATIN [Concomitant]
     Indication: COLON CANCER
     Dosage: 245 MG/M2
     Route: 065

REACTIONS (1)
  - Leukoencephalopathy [Recovering/Resolving]
